FAERS Safety Report 6810569-5 (Version None)
Quarter: 2010Q2

REPORT INFORMATION
  Report Type: 
  Country: None (occurrence: None)
  Receive Date: 20100630
  Receipt Date: 20100623
  Transmission Date: 20101027
  Serious: Yes (Other)
  Sender: FDA-Public Use
  Company Number: GB-TEVA-238800ISR

PATIENT
  Age: 14 Year
  Sex: Female

DRUGS (3)
  1. PREDNISOLONE [Suspect]
     Indication: AUTOIMMUNE HEPATITIS
  2. MYCOPHENOLATE MOFETIL [Suspect]
     Indication: AUTOIMMUNE HEPATITIS
  3. RITUXIMAB [Suspect]
     Indication: THROMBOTIC THROMBOCYTOPENIC PURPURA

REACTIONS (1)
  - SERUM SICKNESS [None]
